FAERS Safety Report 20816226 (Version 2)
Quarter: 2023Q4

REPORT INFORMATION
  Report Type: Report from Study
  Country: US (occurrence: US)
  Receive Date: 20220511
  Receipt Date: 20231025
  Transmission Date: 20240109
  Serious: No
  Sender: FDA-Public Use
  Company Number: US-ABBVIE-22K-163-4387122-00

PATIENT
  Sex: Male

DRUGS (4)
  1. IMBRUVICA [Suspect]
     Active Substance: IBRUTINIB
     Indication: Chronic lymphocytic leukaemia
     Route: 048
  2. IMBRUVICA [Suspect]
     Active Substance: IBRUTINIB
     Indication: Chronic lymphocytic leukaemia
     Dosage: OFF FOR 10 WEEKS
     Route: 048
  3. IMBRUVICA [Suspect]
     Active Substance: IBRUTINIB
     Indication: Chronic lymphocytic leukaemia
     Route: 048
  4. LASIX [Concomitant]
     Active Substance: FUROSEMIDE
     Indication: Product used for unknown indication

REACTIONS (13)
  - Drug interaction [Unknown]
  - Hair disorder [Unknown]
  - Amnesia [Unknown]
  - Skin discolouration [Recovered/Resolved]
  - Oedema peripheral [Recovered/Resolved]
  - Cerebral atrophy [Unknown]
  - Oedema peripheral [Recovering/Resolving]
  - Onychoclasis [Unknown]
  - Muscle spasms [Unknown]
  - Cough [Unknown]
  - Unevaluable event [Unknown]
  - Infection parasitic [Recovered/Resolved]
  - Infection parasitic [Unknown]

NARRATIVE: CASE EVENT DATE: 20210101
